FAERS Safety Report 20711683 (Version 2)
Quarter: 2022Q2

REPORT INFORMATION
  Report Type: Report from Study
  Country: FR (occurrence: FR)
  Receive Date: 20220414
  Receipt Date: 20220505
  Transmission Date: 20220721
  Serious: No
  Sender: FDA-Public Use
  Company Number: FR-BAYER-2022P000474

PATIENT
  Age: 2 Month
  Sex: Male

DRUGS (2)
  1. RIVAROXABAN [Suspect]
     Active Substance: RIVAROXABAN
     Indication: Deep vein thrombosis
     Dosage: 2.7 MG, QD
     Route: 048
     Dates: start: 20220314
  2. RIVAROXABAN [Suspect]
     Active Substance: RIVAROXABAN
     Dosage: 4.2 MG, QD
     Route: 048
     Dates: start: 20220405

REACTIONS (1)
  - Blood bilirubin increased [Unknown]

NARRATIVE: CASE EVENT DATE: 20220405
